FAERS Safety Report 6586357-4 (Version None)
Quarter: 2010Q1

REPORT INFORMATION
  Report Type: 
  Country: None (occurrence: None)
  Receive Date: 20100217
  Receipt Date: 20100211
  Transmission Date: 20100710
  Serious: Yes (Other)
  Sender: FDA-Public Use
  Company Number: US-ALLERGAN-1001903US

PATIENT
  Age: 31 Year
  Sex: Female

DRUGS (5)
  1. PREDNISOLONE ACETATE SUS [Suspect]
     Indication: DRUG USE FOR UNKNOWN INDICATION
     Route: 047
  2. MOXIFLOXACIN HCL [Suspect]
     Indication: DRUG USE FOR UNKNOWN INDICATION
     Route: 047
  3. POLYSPORIN OINTMENT [Concomitant]
     Indication: DRUG USE FOR UNKNOWN INDICATION
  4. HOMATROPINE [Concomitant]
     Indication: DRUG USE FOR UNKNOWN INDICATION
  5. ARTIFICIAL TEARS [Concomitant]

REACTIONS (4)
  - DRUG INEFFECTIVE [None]
  - EYE PAIN [None]
  - OCULAR HYPERAEMIA [None]
  - ULCERATIVE KERATITIS [None]
